FAERS Safety Report 13023465 (Version 1)
Quarter: 2016Q4

REPORT INFORMATION
  Report Type: Spontaneous
  Country: US (occurrence: US)
  Receive Date: 20161213
  Receipt Date: 20161213
  Transmission Date: 20170207
  Serious: Yes (Death, Hospitalization, Other)
  Sender: FDA-Public Use
  Company Number: US-AMGEN-USASP2016172917

PATIENT
  Age: 88 Year
  Sex: Female

DRUGS (2)
  1. PROLIA [Suspect]
     Active Substance: DENOSUMAB
     Indication: OSTEOPOROSIS POSTMENOPAUSAL
     Dosage: 60 MG, UNK
     Route: 065
     Dates: start: 2013, end: 20161118
  2. NEULASTA [Suspect]
     Active Substance: PEGFILGRASTIM
     Indication: PRODUCT USED FOR UNKNOWN INDICATION
     Dosage: UNK
     Route: 065

REACTIONS (9)
  - Death [Fatal]
  - Pleural effusion [Unknown]
  - Small cell lung cancer [Unknown]
  - Pneumonia [Unknown]
  - Renal disorder [Unknown]
  - Blood pressure increased [Unknown]
  - Inappropriate schedule of drug administration [Unknown]
  - Heart rate increased [Unknown]
  - Adverse reaction [Unknown]
